FAERS Safety Report 9825217 (Version 1)
Quarter: 2014Q1

REPORT INFORMATION
  Report Type: Spontaneous
  Country: US (occurrence: None)
  Receive Date: 20140115
  Receipt Date: 20140115
  Transmission Date: 20141002
  Serious: Yes (Hospitalization)
  Sender: FDA-Public Use
  Company Number: None

PATIENT
  Age: 66 Year
  Sex: Female
  Weight: 61 kg

DRUGS (11)
  1. XL184 [Suspect]
     Dates: end: 20131216
  2. AMLODIPINE [Concomitant]
  3. ATIVAN [Concomitant]
  4. CHLOHEXIDINE ORAL RINSE [Concomitant]
  5. LIDOCAINE TRAUSDERMAL PATCH [Concomitant]
  6. LOPERAMIDE [Concomitant]
  7. UREA TOPICAL CREAM [Concomitant]
  8. AMMONIUM LACTATE [Concomitant]
  9. COLACE [Concomitant]
  10. LISINOPRIL [Concomitant]
  11. ONDANSETRON [Concomitant]

REACTIONS (10)
  - Headache [None]
  - Dizziness [None]
  - Fatigue [None]
  - Decreased appetite [None]
  - Dry mouth [None]
  - Nausea [None]
  - Constipation [None]
  - Blister [None]
  - Hypertension [None]
  - Platelet count decreased [None]
